FAERS Safety Report 20328420 (Version 1)
Quarter: 2022Q1

REPORT INFORMATION
  Report Type: Spontaneous
  Country: CA (occurrence: CA)
  Receive Date: 20220112
  Receipt Date: 20220112
  Transmission Date: 20220424
  Serious: Yes (Death, Hospitalization, Other)
  Sender: FDA-Public Use
  Company Number: CA-NOVARTISPH-NVSC2022CA005374

PATIENT
  Age: 73 Year
  Sex: Female

DRUGS (5)
  1. SANDOSTATIN LAR DEPOT [Suspect]
     Active Substance: OCTREOTIDE ACETATE
     Indication: Carcinoid tumour
     Dosage: 30 MG
     Route: 030
  2. SANDOSTATIN LAR DEPOT [Suspect]
     Active Substance: OCTREOTIDE ACETATE
  3. SANDOSTATIN LAR DEPOT [Suspect]
     Active Substance: OCTREOTIDE ACETATE
  4. AMLODIPINE BESYLATE [Suspect]
     Active Substance: AMLODIPINE BESYLATE
     Indication: Product used for unknown indication
     Dosage: UNK
     Route: 048
  5. PERINDOPRIL [Concomitant]
     Active Substance: PERINDOPRIL
     Indication: Product used for unknown indication
     Dosage: UNK
     Route: 048

REACTIONS (16)
  - Blood pressure diastolic decreased [Fatal]
  - Blood pressure systolic increased [Fatal]
  - Blood pressure decreased [Fatal]
  - Breath sounds abnormal [Fatal]
  - Chronic obstructive pulmonary disease [Fatal]
  - Death [Fatal]
  - Pleural effusion [Fatal]
  - Polyp [Fatal]
  - Secretion discharge [Fatal]
  - Cough [Fatal]
  - Heart rate increased [Fatal]
  - Fatigue [Fatal]
  - Oedema peripheral [Fatal]
  - Weight decreased [Fatal]
  - Dizziness [Fatal]
  - Dyspnoea [Fatal]
